FAERS Safety Report 6278025-3 (Version None)
Quarter: 2009Q3

REPORT INFORMATION
  Report Type: 
  Country: None (occurrence: None)
  Receive Date: 20090722
  Receipt Date: 20090709
  Transmission Date: 20100115
  Serious: Yes (Disabling, Other)
  Sender: FDA-Public Use
  Company Number: PHHY2008DE08329

PATIENT
  Sex: Female
  Weight: 84 kg

DRUGS (10)
  1. FEMARA [Suspect]
     Indication: BREAST CANCER
     Dosage: 2.5 MG DAILY
     Route: 048
     Dates: start: 20070327
  2. FEMARA [Suspect]
     Dosage: 2.5 MG DAILY
     Route: 048
     Dates: start: 20070329
  3. CEFASEL [Concomitant]
     Dosage: 300 UG, UNK
     Route: 065
     Dates: start: 20061001
  4. ATENOLOL [Concomitant]
     Dosage: 25 MG, UNK
     Route: 065
  5. SIMVASTATIN [Concomitant]
     Dosage: 80 MG
     Route: 065
  6. ISCADOR [Concomitant]
     Dosage: THREE IN A WEEK
     Route: 065
     Dates: start: 20061001
  7. TELMISARTAN [Concomitant]
     Dosage: 80/ 12.5 MG
     Route: 065
     Dates: start: 20061104
  8. SELEN [Concomitant]
     Dosage: 300 UG, UNK
     Route: 065
     Dates: start: 20061104
  9. OEKOLP [Concomitant]
     Route: 067
  10. ZOMETA [Concomitant]
     Dosage: 4 MG EVERY 6 MONTHS
     Dates: start: 20090519

REACTIONS (8)
  - APHASIA [None]
  - DEMENTIA [None]
  - FALL [None]
  - GENERAL PHYSICAL HEALTH DETERIORATION [None]
  - LEUKOENCEPHALOPATHY [None]
  - MEMORY IMPAIRMENT [None]
  - OPEN FRACTURE [None]
  - SPEECH DISORDER [None]
